FAERS Safety Report 10613866 (Version 1)
Quarter: 2014Q4

REPORT INFORMATION
  Report Type: Spontaneous
  Country: US (occurrence: US)
  Receive Date: 20141128
  Receipt Date: 20141128
  Transmission Date: 20150529
  Serious: Yes (Hospitalization)
  Sender: FDA-Public Use
  Company Number: US-PFIZER INC-2014323893

PATIENT
  Age: 83 Year
  Sex: Female
  Weight: 59 kg

DRUGS (1)
  1. XALKORI [Suspect]
     Active Substance: CRIZOTINIB
     Indication: LUNG NEOPLASM MALIGNANT
     Dosage: 250 MG, 2X/DAY
     Dates: start: 20141123, end: 20141123

REACTIONS (2)
  - Atrial fibrillation [Not Recovered/Not Resolved]
  - Cardiac failure [Not Recovered/Not Resolved]
